FAERS Safety Report 9715615 (Version 1)
Quarter: 2013Q4

REPORT INFORMATION
  Report Type: Report from Study
  Country: US (occurrence: US)
  Receive Date: 20131127
  Receipt Date: 20131127
  Transmission Date: 20140711
  Serious: Yes (Hospitalization, Other)
  Sender: FDA-Public Use
  Company Number: US-ROCHE-1308848

PATIENT
  Age: 67 Year
  Sex: Female

DRUGS (5)
  1. RITUXAN [Suspect]
     Indication: RHEUMATOID ARTHRITIS
     Route: 042
     Dates: start: 201201
  2. PREDNISONE [Concomitant]
  3. METHOTREXATE [Concomitant]
  4. OXYCODONE [Concomitant]
  5. OXYCONTIN [Concomitant]

REACTIONS (5)
  - Procedural complication [Recovered/Resolved]
  - Pneumonia [Recovered/Resolved]
  - Bronchitis [Recovered/Resolved]
  - Rheumatoid arthritis [Not Recovered/Not Resolved]
  - Amnesia [Not Recovered/Not Resolved]
